FAERS Safety Report 19005899 (Version 1)
Quarter: 2021Q1

REPORT INFORMATION
  Report Type: Spontaneous
  Country: US (occurrence: US)
  Receive Date: 20210314
  Receipt Date: 20210314
  Transmission Date: 20210420
  Serious: No
  Sender: FDA-Public Use
  Company Number: US-EMD SERONO-9222002

PATIENT
  Age: 68 Year
  Sex: Male

DRUGS (1)
  1. SEROSTIM [Suspect]
     Active Substance: SOMATROPIN
     Indication: HIV LIPODYSTROPHY
     Route: 058
     Dates: start: 2020

REACTIONS (4)
  - Rash erythematous [Unknown]
  - Rash [Unknown]
  - Rash pruritic [Unknown]
  - Photosensitivity reaction [Unknown]

NARRATIVE: CASE EVENT DATE: 20210222
